FAERS Safety Report 16733142 (Version 1)
Quarter: 2019Q3

REPORT INFORMATION
  Report Type: Spontaneous
  Country: FR (occurrence: FR)
  Receive Date: 20190823
  Receipt Date: 20190823
  Transmission Date: 20191005
  Serious: Yes (Death, Hospitalization)
  Sender: FDA-Public Use
  Company Number: FR-ROCHE-2387012

PATIENT
  Age: 28 Year
  Sex: Female

DRUGS (2)
  1. AVASTIN [Suspect]
     Active Substance: BEVACIZUMAB
     Indication: ADENOCARCINOMA
     Dosage: ON 07/SEP/2012, RECEIVED MOST RECENT DOSE OF BEVACIZUMAB
     Route: 042
     Dates: start: 20120813
  2. TOPOTECAN HYDROCHLORIDE. [Suspect]
     Active Substance: TOPOTECAN HYDROCHLORIDE
     Indication: PRODUCT USED FOR UNKNOWN INDICATION
     Dosage: ON 07/SEP/2012, RECEIVED MOST RECENT DOSE OF TOPOTECAN HYDROCHLORIDE
     Route: 042
     Dates: start: 20120813

REACTIONS (2)
  - Gastrointestinal perforation [Fatal]
  - Abdominal pain [Fatal]

NARRATIVE: CASE EVENT DATE: 20120907
